FAERS Safety Report 15713203 (Version 1)
Quarter: 2018Q4

REPORT INFORMATION
  Report Type: Spontaneous
  Country: US (occurrence: US)
  Receive Date: 20181212
  Receipt Date: 20181212
  Transmission Date: 20190205
  Serious: No
  Sender: FDA-Public Use
  Company Number: US-ENDO PHARMACEUTICALS INC-2018-025851

PATIENT
  Age: 63 Year
  Sex: Male
  Weight: 129.25 kg

DRUGS (1)
  1. TESTIM [Suspect]
     Active Substance: TESTOSTERONE
     Indication: BLOOD TESTOSTERONE DECREASED
     Dosage: 50 MG APPLIED TO SHOULDERS, SINGLE USE
     Route: 062
     Dates: start: 201803, end: 201803

REACTIONS (7)
  - Ageusia [Not Recovered/Not Resolved]
  - Burning sensation [Not Recovered/Not Resolved]
  - Product odour abnormal [Not Recovered/Not Resolved]
  - Eye irritation [Unknown]
  - Anosmia [Not Recovered/Not Resolved]
  - Therapy cessation [Unknown]
  - Nasal discomfort [Unknown]

NARRATIVE: CASE EVENT DATE: 201803
